FAERS Safety Report 15423195 (Version 1)
Quarter: 2018Q3

REPORT INFORMATION
  Report Type: Report from Study
  Country: IL (occurrence: IL)
  Receive Date: 20180925
  Receipt Date: 20180925
  Transmission Date: 20181010
  Serious: No
  Sender: FDA-Public Use
  Company Number: IL-IPSEN BIOPHARMACEUTICALS, INC.-2018-14170

PATIENT
  Age: 63 Year
  Sex: Female

DRUGS (16)
  1. OMEPRADEX [Concomitant]
     Active Substance: OMEPRAZOLE
  2. BRICALIN [Concomitant]
     Dosage: 10MG/1ML
  3. SODIUM CHLORIDE. [Concomitant]
     Active Substance: SODIUM CHLORIDE
     Dosage: 0.9% NAR
  4. PLAVIX [Concomitant]
     Active Substance: CLOPIDOGREL BISULFATE
  5. CLOPIDOGREL [Concomitant]
     Active Substance: CLOPIDOGREL BISULFATE
  6. ELTROXIN [Concomitant]
     Active Substance: LEVOTHYROXINE
  7. DISOTHIAZIDE [Concomitant]
     Active Substance: HYDROCHLOROTHIAZIDE
  8. AEROVENT [Concomitant]
     Dosage: STRENGTH: 20 ML/0.25 MG/ML
  9. CALTRATE [Concomitant]
     Active Substance: CALCIUM CARBONATE
  10. ENALAPRIL [Concomitant]
     Active Substance: ENALAPRIL
  11. QVAR [Concomitant]
     Active Substance: BECLOMETHASONE DIPROPIONATE
     Dosage: AUTO HALER 100MC
  12. AMLODIPINE MALEATE [Concomitant]
     Active Substance: AMLODIPINE MALEATE
  13. SOMATULINE AUTOGEL 120MG [Suspect]
     Active Substance: LANREOTIDE ACETATE
     Indication: NEUROENDOCRINE TUMOUR
     Route: 058
     Dates: start: 20090211
  14. VITAMIDYNE D3 DRP [Concomitant]
     Dosage: STRENGTH: 200 IU 10 ML 200
  15. CODACAMOL [Concomitant]
  16. ELTROXIN [Concomitant]
     Active Substance: LEVOTHYROXINE

REACTIONS (4)
  - Asthenia [Unknown]
  - Dyspnoea [Unknown]
  - Cold sweat [Unknown]
  - Chest discomfort [Unknown]

NARRATIVE: CASE EVENT DATE: 20180903
